FAERS Safety Report 16823440 (Version 1)
Quarter: 2019Q3

REPORT INFORMATION
  Report Type: Report from Study
  Country: US (occurrence: US)
  Receive Date: 20190918
  Receipt Date: 20190918
  Transmission Date: 20191005
  Serious: Yes (Life-Threatening, Hospitalization, Other)
  Sender: FDA-Public Use
  Company Number: US-RECRO GAINESVILLE LLC-REPH-2019-000188

PATIENT
  Age: 22 Year
  Sex: Male
  Weight: 82 kg

DRUGS (4)
  1. VERAPAMIL HYDROCHLORIDE SUSTAINED RELEASE [Suspect]
     Active Substance: VERAPAMIL HYDROCHLORIDE
     Dosage: 80 MILLIGRAM, TID
     Route: 048
  2. VERAPAMIL HYDROCHLORIDE SUSTAINED RELEASE [Suspect]
     Active Substance: VERAPAMIL HYDROCHLORIDE
     Dosage: 80 MILLIGRAMS ( UP TO 200 TABLETS), ONE TIME DOSE
     Route: 048
  3. THEO-DUR [Concomitant]
     Active Substance: THEOPHYLLINE ANHYDROUS
     Dosage: 200 MILLIGRAM, BID
     Route: 048
  4. QUINIDINE [Concomitant]
     Active Substance: QUINIDINE
     Dosage: 300 MILLIGRAM, TID
     Route: 048

REACTIONS (7)
  - Pulmonary oedema [Recovered/Resolved]
  - Hypotension [Recovered/Resolved]
  - Cardiomegaly [Recovered/Resolved]
  - Intentional overdose [Recovered/Resolved]
  - Atrioventricular dissociation [Recovered/Resolved]
  - Anuria [Recovered/Resolved]
  - Somnolence [Recovered/Resolved]
